FAERS Safety Report 6090573-8 (Version None)
Quarter: 2009Q1

REPORT INFORMATION
  Report Type: 
  Country: None (occurrence: None)
  Receive Date: 20090224
  Receipt Date: 20090119
  Transmission Date: 20090719
  Serious: No
  Sender: FDA-Public Use
  Company Number: US-ABBOTT-09P-163-0498729-00

PATIENT
  Sex: Female

DRUGS (11)
  1. SIMCOR [Suspect]
     Indication: BLOOD CHOLESTEROL INCREASED
     Dosage: 500/20 MG DAILY AT BEDTIME
     Route: 048
     Dates: start: 20081201
  2. ADVAIR HFA [Concomitant]
     Indication: DRUG USE FOR UNKNOWN INDICATION
  3. METFORMIN [Concomitant]
     Indication: DRUG USE FOR UNKNOWN INDICATION
  4. CELEXA [Concomitant]
     Indication: DRUG USE FOR UNKNOWN INDICATION
  5. METOLAZONE [Concomitant]
     Indication: DRUG USE FOR UNKNOWN INDICATION
  6. NORVASC [Concomitant]
     Indication: DRUG USE FOR UNKNOWN INDICATION
  7. ALPRAZOLAM [Concomitant]
     Indication: DRUG USE FOR UNKNOWN INDICATION
  8. LASIX [Concomitant]
     Indication: DRUG USE FOR UNKNOWN INDICATION
  9. ASPIRIN [Concomitant]
     Indication: DRUG USE FOR UNKNOWN INDICATION
  10. MYCARDIA [Concomitant]
     Indication: DRUG USE FOR UNKNOWN INDICATION
  11. IBUPROFEN TABLETS [Concomitant]
     Indication: DRUG USE FOR UNKNOWN INDICATION

REACTIONS (2)
  - BLOOD GLUCOSE INCREASED [None]
  - FLUSHING [None]
